FAERS Safety Report 10900510 (Version 1)
Quarter: 2015Q1

REPORT INFORMATION
  Report Type: Spontaneous
  Country: US (occurrence: None)
  Receive Date: 20150303
  Receipt Date: 20150303
  Transmission Date: 20150721
  Serious: Yes (Life-Threatening, Hospitalization, Other)
  Sender: FDA-Public Use
  Company Number: ADR-2015-00089

PATIENT
  Age: 47 Year
  Sex: Male

DRUGS (5)
  1. AMITRIPTYLINE [Suspect]
     Active Substance: AMITRIPTYLINE
     Dosage: QHS
  2. GABAPENTIN. [Suspect]
     Active Substance: GABAPENTIN
     Dosage: 1200
  3. SUBOXONE [Suspect]
     Active Substance: BUPRENORPHINE HYDROCHLORIDE\NALOXONE HYDROCHLORIDE
  4. BACLOFEN INTRATHECAL [Suspect]
     Active Substance: BACLOFEN
     Indication: MUSCLE SPASTICITY
  5. FLUOXETINE [Suspect]
     Active Substance: FLUOXETINE\FLUOXETINE HYDROCHLORIDE

REACTIONS (13)
  - Urosepsis [None]
  - Lethargy [None]
  - Hypotension [None]
  - Encephalopathy [None]
  - Pyrexia [None]
  - Hypotonia [None]
  - Poisoning [None]
  - Coma [None]
  - Infection [None]
  - Blood calcium decreased [None]
  - Autonomic nervous system imbalance [None]
  - Depressed level of consciousness [None]
  - Muscle atrophy [None]

NARRATIVE: CASE EVENT DATE: 20150109
